FAERS Safety Report 11895459 (Version 2)
Quarter: 2016Q1

REPORT INFORMATION
  Report Type: Report from Study
  Country: JP (occurrence: JP)
  Receive Date: 20160107
  Receipt Date: 20160115
  Transmission Date: 20160526
  Serious: Yes (Hospitalization)
  Sender: FDA-Public Use
  Company Number: JP-OTSUKA-2016_000222

PATIENT
  Age: 60 Year
  Sex: Male
  Weight: 87.5 kg

DRUGS (19)
  1. MAINTATE [Concomitant]
     Active Substance: BISOPROLOL FUMARATE
     Indication: HYPERTENSION
     Dosage: 2.5 MG, QD (AFTER DINNER)
     Route: 048
     Dates: start: 20151216
  2. OXAROL [Concomitant]
     Active Substance: MAXACALCITOL
     Indication: HYPERPARATHYROIDISM SECONDARY
     Dosage: 2.5 ?G, QW (ON FRIDAY)
     Route: 042
     Dates: start: 20151113
  3. ACHROMYCIN [Concomitant]
     Active Substance: TETRACYCLINE HYDROCHLORIDE
     Indication: OPEN FRACTURE
     Dosage: QS, PRN
     Route: 061
     Dates: start: 20151224
  4. AZILVA [Concomitant]
     Active Substance: AZILSARTAN KAMEDOXOMIL
     Indication: HYPERTENSION
     Dosage: 40 MG, QD (AFTER DINNER)
     Route: 048
     Dates: start: 20151009
  5. EQUA [Concomitant]
     Active Substance: VILDAGLIPTIN
     Indication: DIABETES MELLITUS
     Dosage: 50 MG, QD (AFTER BREAKFAST)
     Route: 048
  6. NIFEDIPINE. [Concomitant]
     Active Substance: NIFEDIPINE
     Dosage: 20 MG, QD (AFTER BREAKFAST)
     Route: 048
     Dates: start: 20151204
  7. PENLES [Concomitant]
     Active Substance: LIDOCAINE
     Indication: PAIN PROPHYLAXIS
     Dosage: 36 MG, TIW (ON DIALYSIS DAY)
     Route: 061
  8. BAYASPIRIN [Concomitant]
     Active Substance: ASPIRIN
     Indication: THROMBOSIS PROPHYLAXIS
     Dosage: 100 MG, QD (AFTER BREAKFAST)
     Route: 048
  9. NIFEDIPINE. [Concomitant]
     Active Substance: NIFEDIPINE
     Indication: HYPERTENSION
     Dosage: 40 MG, BID (AFTER BREAKFAST AND DINNER)
     Route: 048
     Dates: start: 20151204
  10. TOLVAPTAN [Suspect]
     Active Substance: TOLVAPTAN
     Indication: CHRONIC KIDNEY DISEASE
     Dosage: UNK
     Route: 048
     Dates: start: 20150829
  11. CARDENALIN [Concomitant]
     Active Substance: DOXAZOSIN MESYLATE
     Indication: HYPERTENSION
     Dosage: 2 MG, QD (AFTER BREAKFAST)
     Route: 048
     Dates: start: 20150909
  12. GLUCOSE [Concomitant]
     Active Substance: DEXTROSE
     Indication: ANAEMIA PROPHYLAXIS
     Dosage: 20 ML, QW (ON FRIDAY)
     Route: 042
     Dates: start: 20151113
  13. MOHRUS [Concomitant]
     Active Substance: KETOPROFEN
     Indication: PAIN IN EXTREMITY
     Dosage: 60 MG, PRN
     Route: 061
     Dates: start: 20151019
  14. FLUITRAN [Concomitant]
     Active Substance: TRICHLORMETHIAZIDE
     Indication: CHRONIC KIDNEY DISEASE
     Dosage: 2 MG, QD (AFTER BREAFAST)
     Route: 048
  15. CALTAN [Concomitant]
     Active Substance: CALCIUM CARBONATE
     Indication: HYPERPHOSPHATAEMIA
     Dosage: 1000 MG, TID (AFTER EACH MEAL)
     Route: 048
  16. FUROSEMIDE. [Concomitant]
     Active Substance: FUROSEMIDE
     Indication: CHRONIC KIDNEY DISEASE
     Dosage: 40 MG, BID (AFTER BREAKFAST AND LUNCH)
     Route: 048
  17. MYSLEE [Concomitant]
     Active Substance: ZOLPIDEM TARTRATE
     Indication: INSOMNIA
     Dosage: 10 MG, QD (HS)
     Route: 048
  18. SACCHARATED IRON OXIDE [Concomitant]
     Active Substance: IRON SUCROSE
     Indication: ANAEMIA PROPHYLAXIS
     Dosage: 2 MG, QW (ON FRIDAY)
     Route: 042
     Dates: start: 20151113
  19. RINDERON VG [Concomitant]
     Active Substance: BETAMETHASONE VALERATE\GENTAMICIN SULFATE
     Indication: PRURITUS
     Dosage: QS, PRN
     Route: 061
     Dates: start: 20151009

REACTIONS (1)
  - Cardiac failure congestive [Recovered/Resolved]

NARRATIVE: CASE EVENT DATE: 20160101
